FAERS Safety Report 6692386-2 (Version None)
Quarter: 2010Q2

REPORT INFORMATION
  Report Type: 
  Country: None (occurrence: None)
  Receive Date: 20100422
  Receipt Date: 20100412
  Transmission Date: 20101027
  Serious: Yes (Hospitalization, Other)
  Sender: FDA-Public Use
  Company Number: GB-JNJFOC-20100403916

PATIENT
  Age: 73 Year
  Sex: Female
  Weight: 74 kg

DRUGS (10)
  1. REMICADE [Suspect]
     Indication: RHEUMATOID ARTHRITIS
     Route: 042
  2. OTHER BIOLOGICS [Concomitant]
  3. METHOTREXATE [Concomitant]
  4. METHOTREXATE [Concomitant]
  5. CALCIUM  WITH VITAMIN D [Concomitant]
  6. ACETAMINOPHEN WITH PROPOXYPHENE HCL TAB [Concomitant]
  7. FOLIC ACID [Concomitant]
  8. LANSOPRAZOLE [Concomitant]
  9. VIOXX [Concomitant]
  10. CYCLOPHOSPHAMIDE [Concomitant]

REACTIONS (1)
  - BREAST CANCER RECURRENT [None]
